FAERS Safety Report 7930804-X (Version None)
Quarter: 2011Q4

REPORT INFORMATION
  Report Type: 
  Country: None (occurrence: None)
  Receive Date: 20111121
  Receipt Date: 20111114
  Transmission Date: 20120403
  Serious: Yes (Other)
  Sender: FDA-Public Use
  Company Number: JP-GLAXOSMITHKLINE-B0763429A

PATIENT
  Age: 6 Decade
  Sex: Male

DRUGS (1)
  1. DUTASTERIDE [Suspect]
     Indication: ALOPECIA
     Route: 048
     Dates: start: 20110401

REACTIONS (2)
  - PANCREATITIS CHRONIC [None]
  - OFF LABEL USE [None]
